FAERS Safety Report 14012735 (Version 2)
Quarter: 2017Q4

REPORT INFORMATION
  Report Type: Spontaneous
  Country: AU (occurrence: AU)
  Receive Date: 20170926
  Receipt Date: 20171214
  Transmission Date: 20180321
  Serious: Yes (Other)
  Sender: FDA-Public Use
  Company Number: AU-SA-2017SA175892

PATIENT
  Age: 99 Year
  Sex: Male

DRUGS (1)
  1. LANTUS [Suspect]
     Active Substance: INSULIN GLARGINE
     Route: 051
     Dates: start: 20170803

REACTIONS (5)
  - Pulmonary congestion [Unknown]
  - Fatigue [Unknown]
  - Hypersomnia [Unknown]
  - Pain [Unknown]
  - Dyspnoea [Unknown]

NARRATIVE: CASE EVENT DATE: 2017
